FAERS Safety Report 5622821-X (Version None)
Quarter: 2008Q1

REPORT INFORMATION
  Report Type: 
  Country: None (occurrence: None)
  Receive Date: 20080206
  Receipt Date: 20080129
  Transmission Date: 20080703
  Serious: Yes (Other)
  Sender: FDA-Public Use
  Company Number: 2007338187

PATIENT
  Age: 9 Year
  Sex: Male

DRUGS (1)
  1. CETIRIZINE HCL [Suspect]
     Indication: COUGH
     Dosage: 5 MG, ORAL
     Route: 048
     Dates: start: 20071111, end: 20071111

REACTIONS (2)
  - CONVULSION IN CHILDHOOD [None]
  - GRAND MAL CONVULSION [None]
